FAERS Safety Report 7814246-3 (Version None)
Quarter: 2011Q4

REPORT INFORMATION
  Report Type: 
  Country: None (occurrence: None)
  Receive Date: 20111014
  Receipt Date: 20111005
  Transmission Date: 20120403
  Serious: Yes (Life-Threatening, Disabling, Other)
  Sender: FDA-Public Use
  Company Number: JP-JNJFOC-20110903865

PATIENT
  Age: 65 Year
  Sex: Female

DRUGS (10)
  1. UNKNOWN MEDICATION [Concomitant]
     Route: 065
  2. TRICHLORMETHIAZIDE [Concomitant]
     Indication: HYPERTENSION
     Route: 048
     Dates: start: 20110316
  3. GALANTAMINE HYDROBROMIDE [Suspect]
     Route: 048
     Dates: start: 20110831, end: 20110901
  4. ABILIFY [Suspect]
     Indication: HALLUCINATION
     Route: 048
     Dates: start: 20110406, end: 20110901
  5. ROHYPNOL [Concomitant]
     Indication: INSOMNIA
     Route: 048
     Dates: start: 20110316
  6. SEROQUEL [Suspect]
     Route: 048
     Dates: start: 20110831, end: 20110901
  7. LOSARTAN POTASSIUM [Concomitant]
     Indication: HYPERTENSION
     Route: 048
     Dates: start: 20110316
  8. ABILIFY [Suspect]
     Route: 048
     Dates: start: 20110316, end: 20110405
  9. SEROQUEL [Suspect]
     Indication: HALLUCINATION
     Route: 048
     Dates: start: 20110316, end: 20110830
  10. GALANTAMINE HYDROBROMIDE [Suspect]
     Indication: PRODUCT USED FOR UNKNOWN INDICATION
     Route: 048

REACTIONS (1)
  - NEUROLEPTIC MALIGNANT SYNDROME [None]
